FAERS Safety Report 9699082 (Version 1)
Quarter: 2013Q4

REPORT INFORMATION
  Report Type: Spontaneous
  Country: GB (occurrence: GB)
  Receive Date: 20131120
  Receipt Date: 20131120
  Transmission Date: 20140711
  Serious: Yes (Life-Threatening, Hospitalization)
  Sender: FDA-Public Use
  Company Number: GB-PFIZER INC-2013326254

PATIENT
  Age: 74 Year
  Sex: Female

DRUGS (6)
  1. SERTRALINE HCL [Suspect]
     Indication: DEPRESSION
     Dosage: 50 MG, UNK
     Route: 048
     Dates: start: 20131011, end: 20131022
  2. ASPIRIN [Suspect]
     Dosage: 75 MG, UNK
     Route: 048
  3. ZOPICLONE [Concomitant]
     Dosage: UNK
  4. LISINOPRIL [Concomitant]
     Dosage: UNK
  5. AMLODIPINE [Concomitant]
     Dosage: UNK
  6. SIMVASTATIN [Concomitant]
     Dosage: UNK

REACTIONS (8)
  - Upper gastrointestinal haemorrhage [Recovering/Resolving]
  - Melaena [Unknown]
  - Nausea [Unknown]
  - Dyspepsia [Unknown]
  - Oesophagitis [Unknown]
  - Hiatus hernia [Unknown]
  - Haemoglobin decreased [Unknown]
  - Duodenal ulcer [Unknown]
